FAERS Safety Report 6240150-0 (Version None)
Quarter: 2009Q2

REPORT INFORMATION
  Report Type: 
  Country: None (occurrence: None)
  Receive Date: 20090623
  Receipt Date: 20090416
  Transmission Date: 20091009
  Serious: Yes (Hospitalization)
  Sender: FDA-Public Use
  Company Number: A0779189A

PATIENT
  Age: 72 Year
  Sex: Female

DRUGS (1)
  1. HYCAMTIN [Suspect]
     Dosage: 4MG WEEKLY
     Route: 042
     Dates: start: 20090306

REACTIONS (1)
  - INTERSTITIAL LUNG DISEASE [None]
